FAERS Safety Report 7293561-9 (Version None)
Quarter: 2011Q1

REPORT INFORMATION
  Report Type: 
  Country: None (occurrence: None)
  Receive Date: 20110204
  Receipt Date: 20110122
  Transmission Date: 20110831
  Serious: Yes (Other)
  Sender: FDA-Public Use
  Company Number: 2011000424

PATIENT

DRUGS (4)
  1. OXALIPLATIN [Suspect]
     Indication: COLORECTAL CANCER
     Dosage: (85 MG/M2)
  2. LEUCOVORIN (FOLINIC ACID) [Suspect]
     Indication: COLORECTAL CANCER
     Dosage: (200 MG/M2)
  3. FLUOROURACIL [Suspect]
     Indication: COLORECTAL CANCER
     Dosage: INTRAVENOUS
     Route: 042
  4. ERLOTINIB (ERLOTINIB) (TABLET) (ERLOTINIB) [Suspect]
     Indication: COLORECTAL CANCER
     Dosage: (150 MG), ORAL
     Route: 048

REACTIONS (2)
  - ABDOMINAL PAIN [None]
  - PNEUMATOSIS [None]
